FAERS Safety Report 8992794 (Version 2)
Quarter: 2013Q1

REPORT INFORMATION
  Report Type: Spontaneous
  Country: JP (occurrence: JP)
  Receive Date: 20130102
  Receipt Date: 20130315
  Transmission Date: 20140127
  Serious: Yes (Hospitalization, Other)
  Sender: FDA-Public Use
  Company Number: JP-AMGEN-JPNSP2012083669

PATIENT
  Age: 82 Year
  Sex: Male

DRUGS (4)
  1. RANMARK [Suspect]
     Indication: METASTASES TO BONE
     Dosage: 120 MG, UNK
     Route: 058
     Dates: start: 20121107
  2. BAYASPIRIN [Concomitant]
     Dosage: UNKNOWN
     Route: 065
  3. CALCIUM [Concomitant]
     Dosage: UNK
  4. VITAMIN D /00107901/ [Concomitant]

REACTIONS (2)
  - Loss of consciousness [Recovered/Resolved]
  - Blood calcium decreased [Unknown]
